FAERS Safety Report 12269408 (Version 3)
Quarter: 2016Q4

REPORT INFORMATION
  Report Type: Report from Study
  Country: BR (occurrence: BR)
  Receive Date: 20160414
  Receipt Date: 20161221
  Transmission Date: 20170207
  Serious: Yes (Hospitalization)
  Sender: FDA-Public Use
  Company Number: PHHY2013BR006338

PATIENT
  Age: 10 Year
  Sex: Female
  Weight: 33 kg

DRUGS (7)
  1. HIDROXIUREA [Concomitant]
     Active Substance: HYDROXYUREA
     Indication: PRODUCT USED FOR UNKNOWN INDICATION
     Dosage: UNK
     Route: 065
  2. EXJADE [Suspect]
     Active Substance: DEFERASIROX
     Dosage: 35 MG/KG, QD (2 DF OF 500 MG)
     Route: 048
  3. OMEPRAZOL//OMEPRAZOLE [Concomitant]
     Active Substance: OMEPRAZOLE
     Indication: PRODUCT USED FOR UNKNOWN INDICATION
     Route: 065
  4. FOLIC ACID. [Concomitant]
     Active Substance: FOLIC ACID
     Indication: PRODUCT USED FOR UNKNOWN INDICATION
     Dosage: UNK UNK, QW3
     Route: 065
  5. EXJADE [Suspect]
     Active Substance: DEFERASIROX
     Dosage: 35 MG/KG, QD (2 DF OF 500 MG)
     Route: 048
     Dates: start: 2010, end: 201305
  6. HYDREA [Concomitant]
     Active Substance: HYDROXYUREA
     Indication: PRODUCT USED FOR UNKNOWN INDICATION
     Dosage: UNK
     Route: 065
  7. EXJADE [Suspect]
     Active Substance: DEFERASIROX
     Indication: SICKLE CELL ANAEMIA
     Dosage: 500 MG, UNK
     Route: 048
     Dates: start: 20090701

REACTIONS (10)
  - Pneumonia [Recovering/Resolving]
  - Feeding disorder [Unknown]
  - Malaise [Unknown]
  - Abdominal pain upper [Recovered/Resolved]
  - Gastric disorder [Unknown]
  - Vomiting [Unknown]
  - Serum ferritin increased [Unknown]
  - Pain [Unknown]
  - Blood iron decreased [Unknown]
  - Inappropriate schedule of drug administration [Unknown]

NARRATIVE: CASE EVENT DATE: 20160401
